FAERS Safety Report 6902984-6 (Version None)
Quarter: 2010Q3

REPORT INFORMATION
  Report Type: 
  Country: None (occurrence: None)
  Receive Date: 20100803
  Receipt Date: 20080806
  Transmission Date: 20110219
  Serious: Yes (Other)
  Sender: FDA-Public Use
  Company Number: US-PFIZER INC-2008066523

PATIENT
  Sex: Female
  Weight: 94.09 kg

DRUGS (2)
  1. LYRICA [Suspect]
     Indication: FIBROMYALGIA
     Route: 048
     Dates: start: 20080101
  2. BENICAR [Concomitant]

REACTIONS (4)
  - DEPRESSED MOOD [None]
  - FATIGUE [None]
  - MOOD SWINGS [None]
  - WEIGHT INCREASED [None]
